FAERS Safety Report 7250600-9 (Version None)
Quarter: 2011Q1

REPORT INFORMATION
  Report Type: 
  Country: None (occurrence: None)
  Receive Date: 20110119
  Receipt Date: 20101231
  Transmission Date: 20110831
  Serious: Yes (Life-Threatening, Other)
  Sender: FDA-Public Use
  Company Number: 1000018064

PATIENT
  Age: 27 Year
  Sex: Female
  Weight: 70 kg

DRUGS (5)
  1. ESCITALOPRAM OXALATE [Suspect]
     Dosage: (950 MG, ONCE), ORAL
     Route: 048
     Dates: start: 20101231, end: 20101231
  2. CETRIZINE (CETIRIZINE HYDROCHLORIDE) [Suspect]
     Dosage: (50 MG, ONCE), ORAL
     Route: 048
     Dates: start: 20101231, end: 20101231
  3. ATOSIL (PROMETHAZINE HYDROHCLORIDE) [Suspect]
     Dosage: (2000 MG,ONCE), ORAL
     Route: 048
     Dates: start: 20101231, end: 20101231
  4. LAMOTRIGINE [Suspect]
     Dosage: (2500 MG, ONCE), ORAL
     Route: 048
     Dates: start: 20101231, end: 20101231
  5. NOVALGIN (METAMIZOLE SODIUM MONOHYDRATE) [Suspect]
     Dosage: (5000 MG, ONCE), ORAL
     Route: 048
     Dates: start: 20101231, end: 20101231

REACTIONS (4)
  - MULTIPLE DRUG OVERDOSE INTENTIONAL [None]
  - CONVULSION [None]
  - TACHYCARDIA [None]
  - SUICIDE ATTEMPT [None]
